FAERS Safety Report 6146578-1 (Version None)
Quarter: 2009Q2

REPORT INFORMATION
  Report Type: 
  Country: None (occurrence: None)
  Receive Date: 20090407
  Receipt Date: 20090402
  Transmission Date: 20091009
  Serious: Yes (Hospitalization)
  Sender: FDA-Public Use
  Company Number: US-TEVA-190223USA

PATIENT
  Sex: Male
  Weight: 88.984 kg

DRUGS (3)
  1. ONXOL [Suspect]
     Indication: NON-SMALL CELL LUNG CANCER
     Dosage: EVERY 3 WEEKS
     Route: 042
     Dates: start: 20090106
  2. CARBOPLATIN [Suspect]
     Indication: NON-SMALL CELL LUNG CANCER
     Dosage: EVERY 3 WEEKS
     Route: 042
     Dates: start: 20090106
  3. CP-751,871 [Suspect]
     Indication: NON-SMALL CELL LUNG CANCER
     Dosage: EVERY 3 WEEKS
     Route: 042
     Dates: start: 20090106

REACTIONS (1)
  - HYPONATRAEMIA [None]
